FAERS Safety Report 5327497-7 (Version None)
Quarter: 2007Q2

REPORT INFORMATION
  Report Type: 
  Country: None (occurrence: None)
  Receive Date: 20070517
  Receipt Date: 20061016
  Transmission Date: 20071010
  Serious: Yes (Hospitalization)
  Sender: FDA-Public Use
  Company Number: US-JNJFOC-20061004638

PATIENT
  Age: 43 Year
  Sex: Female

DRUGS (7)
  1. TRAMADOL HCL [Suspect]
     Indication: DRUG USE FOR UNKNOWN INDICATION
  2. BACLOFEN [Suspect]
     Indication: DRUG USE FOR UNKNOWN INDICATION
  3. PROTON PUMP INHIBITOR [Suspect]
     Indication: DRUG USE FOR UNKNOWN INDICATION
  4. DICYCLOMINE [Suspect]
     Indication: DRUG USE FOR UNKNOWN INDICATION
  5. BUSPIRONE HCL [Suspect]
     Indication: DRUG USE FOR UNKNOWN INDICATION
  6. EPHEDRINE/GUAIFENESIN [Suspect]
     Indication: DRUG USE FOR UNKNOWN INDICATION
  7. NEBULIZER [Suspect]
     Indication: DRUG USE FOR UNKNOWN INDICATION

REACTIONS (6)
  - COLD SWEAT [None]
  - DISORIENTATION [None]
  - INTENTIONAL OVERDOSE [None]
  - MYDRIASIS [None]
  - REPETITIVE SPEECH [None]
  - TARDIVE DYSKINESIA [None]
